FAERS Safety Report 16510899 (Version 1)
Quarter: 2019Q3

REPORT INFORMATION
  Report Type: Spontaneous
  Country: US (occurrence: US)
  Receive Date: 20190702
  Receipt Date: 20190702
  Transmission Date: 20191004
  Serious: No
  Sender: FDA-Public Use
  Company Number: US-ACCORD-068722

PATIENT
  Age: 53 Year
  Sex: Male

DRUGS (1)
  1. ALLOPURINOL. [Suspect]
     Active Substance: ALLOPURINOL
     Indication: GOUT
     Dosage: STRENGTH: 300 MG,1 TABLET QD
     Route: 048
     Dates: start: 201805, end: 201805

REACTIONS (1)
  - Drug ineffective [Unknown]
